FAERS Safety Report 8791242 (Version 1)
Quarter: 2012Q4

REPORT INFORMATION
  Report Type: Spontaneous
  Country: US (occurrence: None)
  Receive Date: 20120914
  Receipt Date: 20120914
  Transmission Date: 20130627
  Serious: Yes (Hospitalization)
  Sender: FDA-Public Use
  Company Number: None

PATIENT
  Age: 70 Year
  Sex: Female
  Weight: 75 kg

DRUGS (1)
  1. COUMADIN [Suspect]
     Indication: TOTAL KNEE REPLACEMENT
     Dosage: Recent QHS
     Route: 048

REACTIONS (3)
  - Deep vein thrombosis [None]
  - Haemorrhoids [None]
  - Diverticulum [None]
